FAERS Safety Report 21800068 (Version 1)
Quarter: 2022Q4

REPORT INFORMATION
  Report Type: Report from Study
  Country: FR (occurrence: FR)
  Receive Date: 20221230
  Receipt Date: 20221230
  Transmission Date: 20230113
  Serious: Yes (Hospitalization)
  Sender: FDA-Public Use
  Company Number: FR-JNJFOC-20220736223

PATIENT
  Age: 71 Year
  Sex: Male
  Weight: 72 kg

DRUGS (1)
  1. TECLISTAMAB [Suspect]
     Active Substance: TECLISTAMAB
     Indication: Plasma cell myeloma
     Dosage: 60, 300, 1500 UG/KG STEP-UP DOSES, FOLLOWED BY 6000 UG/KG WEEKLY X 2 CYCLES, BI-WEEKLY FOR 4 CYCLES,
     Route: 058
     Dates: start: 20211116, end: 20220628

REACTIONS (1)
  - Gastroenteritis salmonella [Recovering/Resolving]

NARRATIVE: CASE EVENT DATE: 20220718
